FAERS Safety Report 6398583-8 (Version None)
Quarter: 2009Q4

REPORT INFORMATION
  Report Type: 
  Country: None (occurrence: None)
  Receive Date: 20091007
  Receipt Date: 20090929
  Transmission Date: 20100525
  Serious: Yes (Death, Hospitalization)
  Sender: FDA-Public Use
  Company Number: ADR33862009

PATIENT
  Age: 33 Year
  Sex: Female

DRUGS (8)
  1. SALBUTAMOL (MFR: UNKNOWN) [Suspect]
     Dosage: INHALATION USE
     Route: 055
  2. CITALOPRAM HYDROBROMIDE [Concomitant]
  3. DIAZEPAM [Concomitant]
  4. FLUTICASONE [Concomitant]
  5. METHADONE HYDROCHLORIDE [Concomitant]
  6. NICOTINE [Concomitant]
  7. NIFEDIPINE [Concomitant]
  8. PARACETAMOL [Concomitant]

REACTIONS (4)
  - ASTHMA [None]
  - DRUG INEFFECTIVE [None]
  - EXPIRED DRUG ADMINISTERED [None]
  - INTENTIONAL DRUG MISUSE [None]
